FAERS Safety Report 7238989-8 (Version None)
Quarter: 2011Q1

REPORT INFORMATION
  Report Type: 
  Country: None (occurrence: None)
  Receive Date: 20110121
  Receipt Date: 20110117
  Transmission Date: 20110831
  Serious: Yes (Death, Hospitalization, Other)
  Sender: FDA-Public Use
  Company Number: BR-PFIZER INC-2011005692

PATIENT
  Age: 74 Year
  Sex: Female

DRUGS (3)
  1. FUROSEMIDE [Concomitant]
     Indication: AMERICAN TRYPANOSOMIASIS
     Dosage: UNK
     Dates: start: 20050101
  2. OLMETEC [Suspect]
     Indication: HYPERTENSION
     Dosage: [OLMESARTAN MEDOXOMIL 20MG / HYDROCHLOROTHIAZIDE 12.5MG], ONCE DAILY
     Route: 048
     Dates: start: 20080101, end: 20101201
  3. NORVASC [Suspect]
     Indication: HYPERTENSION
     Dosage: 5 MG, 1X/DAY
     Route: 048
     Dates: start: 20080101, end: 20101201

REACTIONS (3)
  - NEOPLASM MALIGNANT [None]
  - RESPIRATORY FAILURE [None]
  - CARDIAC FAILURE [None]
